FAERS Safety Report 24699876 (Version 2)
Quarter: 2025Q4

REPORT INFORMATION
  Report Type: Spontaneous
  Country: US (occurrence: US)
  Receive Date: 20241205
  Receipt Date: 20251113
  Transmission Date: 20260118
  Serious: No
  Sender: ALIMERA
  Company Number: US-ALIMERA SCIENCES INC.-US-A16013-24-000172

PATIENT

DRUGS (1)
  1. YUTIQ [Suspect]
     Active Substance: FLUOCINOLONE ACETONIDE
     Indication: Product used for unknown indication
     Dosage: 0.18 MILLIGRAM, SINGLE, -UNKNOWN EYE
     Route: 031
     Dates: start: 20240206

REACTIONS (2)
  - Device dispensing error [Unknown]
  - Patient uncooperative [Unknown]

NARRATIVE: CASE EVENT DATE: 20240206
